FAERS Safety Report 21203112 (Version 1)
Quarter: 2022Q3

REPORT INFORMATION
  Report Type: Spontaneous
  Country: US (occurrence: None)
  Receive Date: 20220811
  Receipt Date: 20220811
  Transmission Date: 20221027
  Serious: Yes (Hospitalization)
  Sender: FDA-Public Use
  Company Number: None

PATIENT
  Age: 18 Year
  Sex: Male
  Weight: 56.3 kg

DRUGS (3)
  1. BLEOMYCIN [Suspect]
     Active Substance: BLEOMYCIN SULFATE
     Dosage: OTHER QUANTITY : 74.25 UNIT;?
     Dates: end: 20220804
  2. CARBOPLATIN [Suspect]
     Active Substance: CARBOPLATIN
     Dates: end: 20220721
  3. ETOPOSIDE [Suspect]
     Active Substance: ETOPOSIDE
     Dates: end: 20220725

REACTIONS (7)
  - Febrile neutropenia [None]
  - Fatigue [None]
  - Vomiting [None]
  - Pain [None]
  - Catheter site discharge [None]
  - Urticaria [None]
  - Transfusion reaction [None]

NARRATIVE: CASE EVENT DATE: 20220804
